FAERS Safety Report 16224895 (Version 1)
Quarter: 2019Q2

REPORT INFORMATION
  Report Type: Spontaneous
  Country: US (occurrence: US)
  Receive Date: 20190422
  Receipt Date: 20190422
  Transmission Date: 20190711
  Serious: Yes (Life-Threatening, Other)
  Sender: FDA-Public Use
  Company Number: US-SUNOVION-2019SUN001550

PATIENT

DRUGS (10)
  1. ATIVAN [Suspect]
     Active Substance: LORAZEPAM
  2. EFFEXOR XR [Suspect]
     Active Substance: VENLAFAXINE HYDROCHLORIDE
  3. HALDOL [Suspect]
     Active Substance: HALOPERIDOL
  4. ZYPREXA [Suspect]
     Active Substance: OLANZAPINE
  5. ABILIFY [Suspect]
     Active Substance: ARIPIPRAZOLE
  6. PROZAC [Suspect]
     Active Substance: FLUOXETINE HYDROCHLORIDE
  7. DEPAKOTE [Suspect]
     Active Substance: DIVALPROEX SODIUM
  8. LATUDA [Suspect]
     Active Substance: LURASIDONE HYDROCHLORIDE
     Dosage: UNK
     Route: 048
  9. INVEGA TRINZA [Suspect]
     Active Substance: PALIPERIDONE PALMITATE
  10. RISPERDAL [Suspect]
     Active Substance: RISPERIDONE

REACTIONS (11)
  - Visual impairment [Unknown]
  - Blood glucose increased [Unknown]
  - Sexual dysfunction [Unknown]
  - Myocardial infarction [Unknown]
  - Malaise [Unknown]
  - Euphoric mood [Unknown]
  - Insomnia [Unknown]
  - Cardiac arrest [Unknown]
  - Cerebrovascular accident [Unknown]
  - Seizure [Unknown]
  - Overdose [Unknown]
